FAERS Safety Report 20037545 (Version 5)
Quarter: 2023Q1

REPORT INFORMATION
  Report Type: Spontaneous
  Country: SE (occurrence: SE)
  Receive Date: 20211105
  Receipt Date: 20230103
  Transmission Date: 20230418
  Serious: Yes (Death, Life-Threatening, Hospitalization, Other)
  Sender: FDA-Public Use
  Company Number: SE-Accord-234042

PATIENT
  Age: 72 Year
  Sex: Male
  Weight: 73 kg

DRUGS (63)
  1. OXALIPLATIN [Suspect]
     Active Substance: OXALIPLATIN
     Indication: Diffuse large B-cell lymphoma stage IV
     Dosage: 183 MILLIGRAM, UNK (183 MILLIGRAM, SINGLE)
     Route: 042
     Dates: start: 20210223, end: 20210223
  2. OXALIPLATIN [Suspect]
     Active Substance: OXALIPLATIN
     Dosage: 183 MILLIGRAM,UNK (183 MILLIGRAM, SINGLE)
     Route: 042
     Dates: start: 20210429, end: 20210429
  3. OXALIPLATIN [Suspect]
     Active Substance: OXALIPLATIN
     Dosage: 182 MILLIGRAM, UNK (182 MILLIGRAM, SINGLE)
     Route: 042
     Dates: start: 20210517, end: 20210517
  4. OXALIPLATIN [Suspect]
     Active Substance: OXALIPLATIN
     Dosage: 181 MILLIGRAM, UNK (181 MILLIGRAM, SINGLE)
     Route: 042
     Dates: start: 20210326, end: 20210326
  5. OXALIPLATIN [Suspect]
     Active Substance: OXALIPLATIN
     Dosage: 182 MILLIGRAM, UNK (182 MILLIGRAM, SINGLE)
     Route: 042
     Dates: start: 20210531, end: 20210531
  6. OXALIPLATIN [Suspect]
     Active Substance: OXALIPLATIN
     Dosage: 181 MILLIGRAM, UNK (181 MILLIGRAM, SINGLE)
     Route: 042
     Dates: start: 20210413, end: 20210413
  7. OXALIPLATIN [Suspect]
     Active Substance: OXALIPLATIN
     Dosage: 187 MILLIGRAM, UNK (187 MILLIGRAM, SINGLE)
     Route: 042
     Dates: start: 20210202, end: 20210202
  8. OXALIPLATIN [Suspect]
     Active Substance: OXALIPLATIN
     Dosage: 182 MILLIGRAM,UNK (182 MILLIGRAM, SINGLE)
     Route: 042
     Dates: start: 20210312, end: 20210312
  9. OXALIPLATIN [Suspect]
     Active Substance: OXALIPLATIN
     Dosage: 100 MILLIGRAM/SQ. METER (1Q2W)
     Route: 042
     Dates: start: 20210608, end: 20210706
  10. OXALIPLATIN [Suspect]
     Active Substance: OXALIPLATIN
     Dosage: 182 MILLIGRAM, UNK (182 MILLIGRAM, SINGLE)
     Route: 042
     Dates: start: 20210429, end: 20210429
  11. GEMCITABINE [Suspect]
     Active Substance: GEMCITABINE
     Indication: Diffuse large B-cell lymphoma stage IV
     Dosage: UNK (1830 MILLIGRAM, SINGLE)
     Route: 042
     Dates: start: 20210223, end: 20210223
  12. GEMCITABINE [Suspect]
     Active Substance: GEMCITABINE
     Dosage: UNK (1830 MILLIGRAM, SINGLE)
     Route: 042
     Dates: start: 20210413, end: 20210413
  13. GEMCITABINE [Suspect]
     Active Substance: GEMCITABINE
     Dosage: UNK (1830 MILLIGRAM, SINGLE)
     Route: 042
     Dates: start: 20210312, end: 20210312
  14. GEMCITABINE [Suspect]
     Active Substance: GEMCITABINE
     Dosage: UNK (1830 MILLIGRAM, SINGLE)
     Route: 042
     Dates: start: 20210202, end: 20210202
  15. GEMCITABINE [Suspect]
     Active Substance: GEMCITABINE
     Dosage: UNK (1830 MILLIGRAM, SINGLE)
     Route: 042
     Dates: start: 20210429, end: 20210429
  16. GEMCITABINE [Suspect]
     Active Substance: GEMCITABINE
     Dosage: UNK (1830 MILLIGRAM, SINGLE)
     Route: 042
     Dates: start: 20210531, end: 20210531
  17. GEMCITABINE [Suspect]
     Active Substance: GEMCITABINE
     Dosage: UNK (1830 MILLIGRAM, SINGLE)
     Route: 042
     Dates: start: 20210517, end: 20210517
  18. GEMCITABINE [Suspect]
     Active Substance: GEMCITABINE
     Dosage: UNK (1830 MILLIGRAM, SINGLE)
     Route: 042
     Dates: start: 20210326, end: 20210326
  19. GEMCITABINE [Suspect]
     Active Substance: GEMCITABINE
     Dosage: UNK (1820 MILLIGRAM, SINGLE)
     Route: 042
     Dates: start: 20210312, end: 20210312
  20. GEMCITABINE [Suspect]
     Active Substance: GEMCITABINE
     Dosage: UNK (1820 MILLIGRAM, SINGLE)
     Route: 042
     Dates: start: 20210531, end: 20210531
  21. GEMCITABINE [Suspect]
     Active Substance: GEMCITABINE
     Dosage: UNK (1820 MILLIGRAM, SINGLE)
     Route: 042
     Dates: start: 20210517, end: 20210517
  22. GEMCITABINE [Suspect]
     Active Substance: GEMCITABINE
     Dosage: UNK (1820 MILLIGRAM, SINGLE)
     Route: 042
     Dates: start: 20210429, end: 20210429
  23. GEMCITABINE [Suspect]
     Active Substance: GEMCITABINE
     Dosage: UNK (1000 MILLIGRAM, 1Q2W)
     Route: 042
     Dates: start: 20210608, end: 20210706
  24. GEMCITABINE [Suspect]
     Active Substance: GEMCITABINE
     Dosage: UNK (1870 MILLIGRAM, SINGLE)
     Route: 042
     Dates: start: 20210202, end: 20210202
  25. GEMCITABINE [Suspect]
     Active Substance: GEMCITABINE
     Dosage: UNK (1810 MILLIGRAM, SINGLE)
     Route: 042
     Dates: start: 20210413, end: 20210413
  26. EPCORITAMAB [Suspect]
     Active Substance: EPCORITAMAB
     Indication: Product used for unknown indication
     Dosage: 48 MILLIGRAM, QW, FULL DOSE: 48 MILLIGRAM WEEKLY
     Route: 058
     Dates: start: 20210608, end: 20210608
  27. EPCORITAMAB [Suspect]
     Active Substance: EPCORITAMAB
     Dosage: 0.16 MILLIGRAM, SINGLE;
     Route: 058
     Dates: start: 20210608, end: 20210608
  28. EPCORITAMAB [Suspect]
     Active Substance: EPCORITAMAB
     Dosage: 0.8 MILLIGRAM, SINGLE
     Route: 058
     Dates: start: 20210615, end: 20210615
  29. EPCORITAMAB [Suspect]
     Active Substance: EPCORITAMAB
     Dosage: FULL DOSE: 48 MILLIGRAM WEEKLY
     Route: 058
     Dates: start: 20210622, end: 20210713
  30. SOLU-MEDROL [Concomitant]
     Active Substance: METHYLPREDNISOLONE SODIUM SUCCINATE
     Dosage: UNK
     Route: 065
     Dates: start: 20210319
  31. PANTOPRAZOLE [Concomitant]
     Active Substance: PANTOPRAZOLE
     Dosage: UNK
     Route: 065
     Dates: start: 20200511, end: 20210704
  32. PREDNISOLONE [Concomitant]
     Active Substance: PREDNISOLONE
     Dosage: UNK
     Route: 065
     Dates: start: 20210514, end: 20210531
  33. PREDNISOLONE [Concomitant]
     Active Substance: PREDNISOLONE
     Dosage: 100 MILLIGRAM
     Route: 065
     Dates: start: 20210713, end: 20210716
  34. PREDNISOLONE [Concomitant]
     Active Substance: PREDNISOLONE
     Dosage: UNK
     Route: 065
     Dates: start: 20210706, end: 20210709
  35. ACYCLOVIR [Concomitant]
     Active Substance: ACYCLOVIR
     Dosage: UNK
     Route: 065
     Dates: start: 20200916
  36. ACYCLOVIR [Concomitant]
     Active Substance: ACYCLOVIR
     Dosage: UNK
     Route: 065
     Dates: start: 20210215, end: 20210624
  37. ACYCLOVIR [Concomitant]
     Active Substance: ACYCLOVIR
     Dosage: UNK
     Route: 065
     Dates: start: 20200619
  38. CALCIUM CARBONATE [Concomitant]
     Active Substance: CALCIUM CARBONATE
     Dosage: UNK
     Route: 065
     Dates: start: 20200402, end: 20210702
  39. ALLOPURINOL [Concomitant]
     Active Substance: ALLOPURINOL
     Dosage: UNK
     Route: 065
     Dates: start: 20210517, end: 20210517
  40. POTASSIUM CHLORIDE [Concomitant]
     Active Substance: POTASSIUM CHLORIDE
     Dosage: UNK
     Route: 065
     Dates: start: 20210608, end: 20210614
  41. ONDANSETRON [Concomitant]
     Active Substance: ONDANSETRON
     Dosage: UNK
     Route: 065
     Dates: start: 20210517, end: 20210517
  42. ATENOLOL [Concomitant]
     Active Substance: ATENOLOL
     Dosage: UNK
     Route: 065
     Dates: start: 20210616, end: 20210704
  43. ACETAMINOPHEN [Concomitant]
     Active Substance: ACETAMINOPHEN
     Dosage: UNK
     Route: 065
     Dates: start: 20210514, end: 20210624
  44. ACETAMINOPHEN [Concomitant]
     Active Substance: ACETAMINOPHEN
     Dosage: 1 GRAM
     Route: 048
     Dates: start: 20210713, end: 20210713
  45. ACETAMINOPHEN [Concomitant]
     Active Substance: ACETAMINOPHEN
     Dosage: UNK
     Route: 065
     Dates: start: 20210713, end: 20210713
  46. PEGFILGRASTIM [Concomitant]
     Active Substance: PEGFILGRASTIM
     Dosage: UNK
     Route: 065
     Dates: start: 20210520, end: 20210520
  47. CALCIUM POLYSTYRENE SULFONATE [Concomitant]
     Active Substance: CALCIUM POLYSTYRENE SULFONATE
     Dosage: UNK
     Route: 065
     Dates: start: 20210701, end: 20210704
  48. CETIRIZINE HYDROCHLORIDE [Concomitant]
     Active Substance: CETIRIZINE HYDROCHLORIDE
     Dosage: UNK
     Route: 065
     Dates: start: 20210514, end: 20210531
  49. CETIRIZINE HYDROCHLORIDE [Concomitant]
     Active Substance: CETIRIZINE HYDROCHLORIDE
     Dosage: 10 MILLIGRAM
     Route: 048
     Dates: start: 20210713, end: 20210713
  50. SPIRONOLACTONE [Concomitant]
     Active Substance: SPIRONOLACTONE
     Dosage: UNK
     Route: 065
     Dates: start: 20210618, end: 20210630
  51. ZOPICLONE [Concomitant]
     Active Substance: ZOPICLONE
     Dosage: UNK
     Route: 065
     Dates: start: 20200318, end: 20210704
  52. FUROSEMIDE [Concomitant]
     Active Substance: FUROSEMIDE
     Dosage: UNK
     Route: 065
     Dates: start: 20210613, end: 20210704
  53. DALTEPARIN [Concomitant]
     Active Substance: DALTEPARIN
     Dosage: UNK
     Route: 065
     Dates: start: 20210326, end: 20210525
  54. TOCILIZUMAB [Concomitant]
     Active Substance: TOCILIZUMAB
     Dosage: UNK
     Route: 065
     Dates: start: 20210707, end: 20210707
  55. TOCILIZUMAB [Concomitant]
     Active Substance: TOCILIZUMAB
     Dosage: UNK
     Route: 065
     Dates: start: 20210606, end: 20210707
  56. DIGOXIN [Concomitant]
     Active Substance: DIGOXIN
     Dosage: UNK
     Route: 065
     Dates: start: 20210705, end: 20210706
  57. DEXAMETHASONE SODIUM PHOSPHATE [Concomitant]
     Active Substance: DEXAMETHASONE SODIUM PHOSPHATE
     Dosage: UNK
     Route: 065
     Dates: start: 20210707, end: 20210710
  58. FILGRASTIM [Concomitant]
     Active Substance: FILGRASTIM
     Dosage: UNK
     Route: 065
     Dates: start: 20210612, end: 20210706
  59. CHOLECALCIFEROL [Concomitant]
     Active Substance: CHOLECALCIFEROL
     Dosage: UNK
     Route: 065
     Dates: start: 20200408, end: 20210704
  60. CALCIUM CHLORIDE [Concomitant]
     Active Substance: CALCIUM CHLORIDE
     Dosage: UNK
     Route: 065
     Dates: start: 20210706, end: 20210707
  61. PREDNISONE [Concomitant]
     Active Substance: PREDNISONE
     Dosage: UNK
     Route: 065
     Dates: start: 20210706, end: 20210709
  62. PREDNISONE [Concomitant]
     Active Substance: PREDNISONE
     Dosage: UNK
     Route: 065
     Dates: start: 20210713, end: 20210716
  63. LEVETIRACETAM [Concomitant]
     Active Substance: LEVETIRACETAM
     Dosage: UNK
     Route: 065
     Dates: start: 20210706, end: 20210707

REACTIONS (5)
  - Ascites [Fatal]
  - Multiple organ dysfunction syndrome [Fatal]
  - Small intestinal perforation [Fatal]
  - Cytokine release syndrome [Recovered/Resolved]
  - Off label use [Unknown]

NARRATIVE: CASE EVENT DATE: 20210606
